FAERS Safety Report 8856008 (Version 1)
Quarter: 2012Q4

REPORT INFORMATION
  Report Type: Spontaneous
  Country: US (occurrence: None)
  Receive Date: 20121022
  Receipt Date: 20121022
  Transmission Date: 20130627
  Serious: Yes (Hospitalization, Other)
  Sender: FDA-Public Use
  Company Number: None

PATIENT
  Age: 69 Year
  Sex: Female
  Weight: 82.3 kg

DRUGS (5)
  1. DABIGATRAN [Suspect]
     Indication: ATRIAL FIBRILLATION
  2. CLOPIDOGREL [Concomitant]
  3. CARVEDILOL [Concomitant]
  4. RANOLAZINE [Concomitant]
  5. VYTORIN [Concomitant]

REACTIONS (1)
  - Gastrointestinal haemorrhage [None]
